FAERS Safety Report 6031649-0 (Version None)
Quarter: 2008Q4

REPORT INFORMATION
  Report Type: 
  Country: None (occurrence: None)
  Receive Date: 20081229
  Receipt Date: 20080225
  Transmission Date: 20090506
  Serious: Yes (Disabling)
  Sender: FDA-Public Use
  Company Number: WAES 0802USA05864

PATIENT
  Sex: Female

DRUGS (4)
  1. ZETIA [Suspect]
     Indication: HYPERLIPIDAEMIA
     Dosage: 10 MG DAILY PO
     Route: 048
  2. THERAPY UNSPECIFIED [Concomitant]
  3. DIURETIC (UNSPECIFIED) [Concomitant]
  4. LOVASTATIN [Concomitant]

REACTIONS (1)
  - MYALGIA [None]
